FAERS Safety Report 21477537 (Version 4)
Quarter: 2023Q1

REPORT INFORMATION
  Report Type: Other
  Country: CA (occurrence: None)
  Receive Date: 20221019
  Receipt Date: 20230127
  Transmission Date: 20230417
  Serious: Yes (Other)
  Sender: FDA-Public Use
  Company Number: CA-ROCHE-3196027

PATIENT
  Age: 55 Year
  Sex: Female

DRUGS (1)
  1. VABYSMO [Suspect]
     Active Substance: FARICIMAB-SVOA
     Indication: Product used for unknown indication
     Dosage: 6 MG/0.05 ML
     Route: 050
     Dates: start: 20220920

REACTIONS (4)
  - Eye haemorrhage [Unknown]
  - Optic nerve injury [Unknown]
  - Dry eye [Unknown]
  - Intraocular pressure increased [Unknown]

NARRATIVE: CASE EVENT DATE: 20220920
